FAERS Safety Report 11750451 (Version 1)
Quarter: 2015Q4

REPORT INFORMATION
  Report Type: Report from Study
  Country: US (occurrence: US)
  Receive Date: 20151118
  Receipt Date: 20151118
  Transmission Date: 20160304
  Serious: Yes (Other)
  Sender: FDA-Public Use
  Company Number: US-GILEAD-2015-0182757

PATIENT
  Age: 45 Year
  Sex: Female

DRUGS (2)
  1. AMBRISENTAN [Suspect]
     Active Substance: AMBRISENTAN
     Indication: PRODUCT USED FOR UNKNOWN INDICATION
     Dosage: 10 MG, QD
     Route: 065
     Dates: start: 20130430
  2. TYVASO [Concomitant]
     Active Substance: TREPROSTINIL

REACTIONS (5)
  - Unevaluable event [Unknown]
  - Somnolence [Unknown]
  - Dizziness [Unknown]
  - Loss of consciousness [Unknown]
  - Bronchitis [Unknown]
